FAERS Safety Report 6335074-4 (Version None)
Quarter: 2009Q3

REPORT INFORMATION
  Report Type: 
  Country: None (occurrence: None)
  Receive Date: 20090831
  Receipt Date: 20090821
  Transmission Date: 20100115
  Serious: Yes (Other)
  Sender: FDA-Public Use
  Company Number: B0579901A

PATIENT
  Sex: Male

DRUGS (5)
  1. PAXIL [Suspect]
     Indication: DEPRESSION
     Dosage: 20MG PER DAY
     Route: 048
     Dates: start: 20090530
  2. DESYREL [Suspect]
     Indication: DEPRESSION
     Dosage: 25MG PER DAY
     Route: 048
     Dates: start: 20090502
  3. EVAMYL [Suspect]
     Indication: INSOMNIA
     Dosage: 1MG PER DAY
     Route: 048
  4. ALCOHOL [Suspect]
  5. LENDORMIN [Suspect]
     Indication: DRUG USE FOR UNKNOWN INDICATION
     Route: 048

REACTIONS (6)
  - AGGRESSION [None]
  - DELIRIUM [None]
  - DIZZINESS [None]
  - DRUG INTERACTION [None]
  - LEGAL PROBLEM [None]
  - MANIA [None]
